FAERS Safety Report 5001337-8 (Version None)
Quarter: 2006Q2

REPORT INFORMATION
  Report Type: 
  Country: None (occurrence: None)
  Receive Date: 20060512
  Receipt Date: 20050308
  Transmission Date: 20061013
  Serious: Yes (Hospitalization)
  Sender: FDA-Public Use
  Company Number: US-MERCK-0503USA01401

PATIENT
  Age: 76 Year
  Sex: Female
  Weight: 76 kg

DRUGS (7)
  1. VIOXX [Suspect]
     Indication: ARTHRITIS
     Route: 048
     Dates: start: 20030604, end: 20040816
  2. PREMPRO [Concomitant]
     Indication: HOT FLUSH
     Route: 065
  3. ACIPHEX [Concomitant]
     Indication: GASTRIC DISORDER
     Route: 065
  4. QUININE SULFATE [Concomitant]
     Indication: MUSCLE SPASMS
     Route: 065
  5. NORVASC [Concomitant]
     Indication: BLOOD PRESSURE
     Route: 048
  6. VASOTEC [Concomitant]
     Route: 065
  7. CALCIUM (UNSPECIFIED) [Concomitant]
     Route: 065

REACTIONS (6)
  - BACK PAIN [None]
  - CARDIAC DISORDER [None]
  - CAROTID ARTERY STENOSIS [None]
  - HYPOAESTHESIA [None]
  - MUSCLE SPASMS [None]
  - PSYCHOMOTOR HYPERACTIVITY [None]
